FAERS Safety Report 13158665 (Version 1)
Quarter: 2017Q1

REPORT INFORMATION
  Report Type: Spontaneous
  Country: US (occurrence: US)
  Receive Date: 20170127
  Receipt Date: 20170127
  Transmission Date: 20170428
  Serious: No
  Sender: FDA-Public Use
  Company Number: US-BAYER-2017-016377

PATIENT
  Age: 20 Year
  Sex: Female

DRUGS (1)
  1. OCELLA [Suspect]
     Active Substance: DROSPIRENONE\ETHINYL ESTRADIOL
     Indication: CONTRACEPTION
     Dosage: 3MG/0.03 MG
     Route: 048

REACTIONS (2)
  - Extra dose administered [None]
  - Drug dose omission [None]

NARRATIVE: CASE EVENT DATE: 20170122
